FAERS Safety Report 7403697-7 (Version None)
Quarter: 2011Q2

REPORT INFORMATION
  Report Type: 
  Country: None (occurrence: None)
  Receive Date: 20110408
  Receipt Date: 20110330
  Transmission Date: 20111010
  Serious: Yes (Other)
  Sender: FDA-Public Use
  Company Number: PHHY2009DE36129

PATIENT
  Sex: Male
  Weight: 82 kg

DRUGS (4)
  1. SANDOSTATIN LAR [Suspect]
     Indication: CARCINOID SYNDROME
     Dosage: 30 MG, QMO
     Dates: start: 20080101
  2. SPIRONOLACTONE [Concomitant]
     Indication: HYPERTENSION
     Dosage: 12.5 UG DAILY
     Route: 048
     Dates: start: 20080201
  3. LERCANIDIPINE [Concomitant]
     Indication: HYPERTENSION
     Dosage: 10 MG, DAILY
     Route: 048
     Dates: start: 20080201
  4. ATACAND [Concomitant]
     Indication: HYPERTENSION
     Dosage: 4 MG, DAILY
     Route: 048
     Dates: start: 20080201

REACTIONS (11)
  - DIARRHOEA [None]
  - HYPOPARATHYROIDISM [None]
  - BLOOD CHROMOGRANIN A INCREASED [None]
  - BLOOD CALCIUM DECREASED [None]
  - WHEEZING [None]
  - DRUG INEFFECTIVE [None]
  - GAIT DISTURBANCE [None]
  - DYSPNOEA [None]
  - BLOOD PHOSPHORUS DECREASED [None]
  - 5-HYDROXYINDOLACETIC ACID IN URINE INCREASED [None]
  - MUSCULAR WEAKNESS [None]
